FAERS Safety Report 5129916-8 (Version None)
Quarter: 2006Q4

REPORT INFORMATION
  Report Type: 
  Country: None (occurrence: None)
  Receive Date: 20061012
  Receipt Date: 20061006
  Transmission Date: 20070319
  Serious: Yes (Other)
  Sender: FDA-Public Use
  Company Number: HQWYE936320SEP06

PATIENT
  Age: 73 Year
  Sex: Male

DRUGS (7)
  1. CORDAREX (AMIODARONE, TABLET) [Suspect]
     Indication: ARRHYTHMIA
     Dosage: SEE IMAGE
     Route: 048
     Dates: start: 20060101, end: 20060601
  2. CORDAREX (AMIODARONE, TABLET) [Suspect]
     Indication: ARRHYTHMIA
     Dosage: SEE IMAGE
     Route: 048
     Dates: start: 20060101
  3. COAPROVEL (IRBESARTAN/HYDROCHLOROTHIAZIDE) [Concomitant]
  4. NITRENDIPINE (NITRENDIPINE) [Concomitant]
  5. MOXONIDINE (MOXONIDINE) [Concomitant]
  6. TALSO UNO (SABAL EXTRACT) [Concomitant]
  7. MARCUMAR [Concomitant]

REACTIONS (2)
  - BLOOD PRESSURE DIASTOLIC INCREASED [None]
  - HYPERTHYROIDISM [None]
